FAERS Safety Report 7425550-5 (Version None)
Quarter: 2011Q2

REPORT INFORMATION
  Report Type: 
  Country: None (occurrence: None)
  Receive Date: 20110420
  Receipt Date: 20110413
  Transmission Date: 20111010
  Serious: Yes (Other)
  Sender: FDA-Public Use
  Company Number: US-NOVOPROD-323337

PATIENT
  Age: 88 Year
  Sex: Male

DRUGS (7)
  1. FUROSEMIDE [Concomitant]
     Indication: HYPERTENSION
     Dosage: 80 MG, QD
     Route: 048
  2. NOVOLINA? N [Suspect]
     Indication: TYPE 2 DIABETES MELLITUS
     Dosage: 80U IN AM, 60U IN PM
     Route: 058
     Dates: start: 20090101
  3. LEVOTHYROXINE SODIUM [Concomitant]
     Indication: HYPOTHYROIDISM
     Dosage: 150 UG, QD
     Route: 048
  4. MINOXIDIL [Concomitant]
     Indication: HYPERTENSION
     Dosage: UNK
     Route: 048
  5. AVAPRO [Concomitant]
     Indication: HYPERTENSION
     Dosage: UNK
     Route: 048
  6. IBUPROFEN [Concomitant]
     Indication: ARTHRITIS
     Dosage: 400 MG, BID
     Route: 048
  7. OMEPRAZOLE [Concomitant]
     Indication: GASTROOESOPHAGEAL REFLUX DISEASE
     Dosage: UNK

REACTIONS (2)
  - CHOROIDAL NEOVASCULARISATION [None]
  - MACULAR DEGENERATION [None]
